FAERS Safety Report 13953570 (Version 1)
Quarter: 2017Q3

REPORT INFORMATION
  Report Type: Spontaneous
  Country: US (occurrence: US)
  Receive Date: 20170911
  Receipt Date: 20170911
  Transmission Date: 20171128
  Serious: No
  Sender: FDA-Public Use
  Company Number: US-PFIZER INC-2017390386

PATIENT
  Sex: Male

DRUGS (1)
  1. EUCRISA [Suspect]
     Active Substance: CRISABOROLE
     Dosage: UNK

REACTIONS (5)
  - Pruritus [Unknown]
  - Secretion discharge [Unknown]
  - Drug ineffective [Unknown]
  - Skin lesion [Unknown]
  - Condition aggravated [Unknown]
